FAERS Safety Report 20851457 (Version 2)
Quarter: 2022Q3

REPORT INFORMATION
  Report Type: Report from Study
  Country: PR (occurrence: PR)
  Receive Date: 20220519
  Receipt Date: 20220816
  Transmission Date: 20221027
  Serious: Yes (Other)
  Sender: FDA-Public Use
  Company Number: PR-ABBVIE-22K-131-4401114-00

PATIENT
  Age: 29 Year
  Sex: Female
  Weight: 93.524 kg

DRUGS (4)
  1. HUMIRA [Suspect]
     Active Substance: ADALIMUMAB
     Indication: Colitis ulcerative
     Route: 058
     Dates: start: 20200416
  2. HUMIRA [Suspect]
     Active Substance: ADALIMUMAB
     Route: 058
  3. TOZINAMERAN [Suspect]
     Active Substance: TOZINAMERAN
     Indication: COVID-19
     Dosage: 1ST DOSE
     Route: 030
     Dates: start: 20210823, end: 20210823
  4. TOZINAMERAN [Suspect]
     Active Substance: TOZINAMERAN
     Dosage: 2ND DOSE
     Route: 030
     Dates: start: 20210913, end: 20210913

REACTIONS (7)
  - Thyroid mass [Not Recovered/Not Resolved]
  - Colitis [Recovered/Resolved]
  - Colitis [Recovered/Resolved]
  - Immunisation reaction [Unknown]
  - Anxiety [Recovering/Resolving]
  - Panic attack [Recovering/Resolving]
  - Chest pain [Recovering/Resolving]

NARRATIVE: CASE EVENT DATE: 20210901
